FAERS Safety Report 17483282 (Version 4)
Quarter: 2020Q2

REPORT INFORMATION
  Report Type: Spontaneous
  Country: JP (occurrence: JP)
  Receive Date: 20200302
  Receipt Date: 20200410
  Transmission Date: 20200713
  Serious: Yes (Death, Other)
  Sender: FDA-Public Use
  Company Number: JP-ROCHE-2557905

PATIENT
  Age: 9 Decade
  Sex: Female

DRUGS (2)
  1. HERCEPTIN [Suspect]
     Active Substance: TRASTUZUMAB
     Indication: BREAST CANCER
     Dosage: DOSAGE IS UNCERTAIN.
     Route: 041
  2. PERJETA [Suspect]
     Active Substance: PERTUZUMAB
     Indication: BREAST CANCER
     Dosage: DOSAGE IS UNCERTAIN.?420MG/14ML
     Route: 041

REACTIONS (5)
  - Enterocolitis [Fatal]
  - Hepatitis [Unknown]
  - Intestinal perforation [Fatal]
  - Metastasis [Unknown]
  - Malignant ascites [Unknown]

NARRATIVE: CASE EVENT DATE: 202002
